FAERS Safety Report 18356233 (Version 1)
Quarter: 2020Q4

REPORT INFORMATION
  Report Type: Spontaneous
  Country: JP (occurrence: JP)
  Receive Date: 20201007
  Receipt Date: 20201007
  Transmission Date: 20210114
  Serious: Yes (Death)
  Sender: FDA-Public Use
  Company Number: JP-SYNEX-T202004858

PATIENT

DRUGS (1)
  1. INOFLO [Suspect]
     Active Substance: NITRIC OXIDE
     Indication: PULMONARY HYPERTENSION
     Dosage: 800 PPM (INHALATION)
     Route: 055
     Dates: start: 20200901, end: 20200903

REACTIONS (1)
  - Death [Fatal]

NARRATIVE: CASE EVENT DATE: 20200903
